FAERS Safety Report 4640124-7 (Version None)
Quarter: 2005Q2

REPORT INFORMATION
  Report Type: 
  Country: None (occurrence: None)
  Receive Date: 20050420
  Receipt Date: 20050405
  Transmission Date: 20051028
  Serious: Yes (Other)
  Sender: FDA-Public Use
  Company Number: JP-ROCHE-401609

PATIENT
  Age: 62 Year
  Sex: Male

DRUGS (8)
  1. VESANOID [Suspect]
     Indication: ACUTE PROMYELOCYTIC LEUKAEMIA
     Route: 048
     Dates: start: 20050315
  2. MAXIPIME [Concomitant]
     Route: 041
     Dates: start: 20050312, end: 20050322
  3. MAXIPIME [Concomitant]
     Route: 041
     Dates: start: 20050328, end: 20050402
  4. LENDORM [Concomitant]
     Route: 048
     Dates: start: 20050314, end: 20050405
  5. GASTER [Concomitant]
     Route: 048
     Dates: start: 20050315, end: 20050406
  6. LASIX [Concomitant]
     Route: 041
     Dates: start: 20050317, end: 20050321
  7. PREDONINE [Concomitant]
     Route: 041
     Dates: start: 20050328, end: 20050401
  8. MEROPEN [Concomitant]
     Route: 041
     Dates: start: 20050403, end: 20050410

REACTIONS (4)
  - ARTHRALGIA [None]
  - BONE PAIN [None]
  - PYREXIA [None]
  - SEPSIS [None]
